FAERS Safety Report 5381191-5 (Version None)
Quarter: 2007Q3

REPORT INFORMATION
  Report Type: 
  Country: None (occurrence: None)
  Receive Date: 20070706
  Receipt Date: 20070629
  Transmission Date: 20080115
  Serious: Yes (Death)
  Sender: FDA-Public Use
  Company Number: AR-MERCK-0707ARG00003

PATIENT
  Age: 53 Year
  Sex: Female

DRUGS (1)
  1. INVANZ [Suspect]
     Indication: PNEUMONIA
     Route: 065
     Dates: start: 20061102, end: 20061105

REACTIONS (1)
  - DEATH [None]
